FAERS Safety Report 8473731-4 (Version None)
Quarter: 2012Q2

REPORT INFORMATION
  Report Type: 
  Country: None (occurrence: None)
  Receive Date: 20120628
  Receipt Date: 20111110
  Transmission Date: 20120825
  Serious: Yes (Death)
  Sender: FDA-Public Use
  Company Number: US-MYLANLABS-2011S1020753

PATIENT
  Age: 55 Year
  Sex: Male
  Weight: 75.75 kg

DRUGS (17)
  1. ASPIRIN [Concomitant]
  2. LIPITOR [Concomitant]
  3. BENZTROPINE MESYLATE [Concomitant]
  4. ENALAPRIL MALEATE [Concomitant]
  5. PANTOPRAZOLE [Concomitant]
  6. COLACE [Concomitant]
  7. CLOZAPINE [Suspect]
     Route: 048
  8. MULTI-VITAMIN [Concomitant]
  9. MAGAL [Concomitant]
  10. METOPROLOL TARTRATE [Concomitant]
  11. SIROLIMUS [Concomitant]
  12. CLOZAPINE [Suspect]
     Indication: SCHIZOAFFECTIVE DISORDER
     Route: 048
  13. NORVASC [Concomitant]
  14. CITALOPRAM HYDROBROMIDE [Concomitant]
  15. CITALOPRAM HYDROBROMIDE [Suspect]
     Indication: DEPRESSION
     Route: 048
     Dates: start: 20110610
  16. DIVALPROEX SODIUM [Concomitant]
  17. MYCOPHENOLATE MOFETIL [Concomitant]

REACTIONS (1)
  - CARDIAC ARREST [None]
